FAERS Safety Report 20354006 (Version 2)
Quarter: 2022Q3

REPORT INFORMATION
  Report Type: Spontaneous
  Country: US (occurrence: US)
  Receive Date: 20220120
  Receipt Date: 20220225
  Transmission Date: 20221027
  Serious: Yes (Other)
  Sender: FDA-Public Use
  Company Number: US-GILEAD-2022-0565984

PATIENT
  Sex: Male
  Weight: 92.063 kg

DRUGS (23)
  1. ATRIPLA [Suspect]
     Active Substance: EFAVIRENZ\EMTRICITABINE\TENOFOVIR DISOPROXIL FUMARATE
     Indication: HIV infection
     Dosage: UNK
     Route: 048
     Dates: start: 200803, end: 201609
  2. GENVOYA [Concomitant]
     Active Substance: COBICISTAT\ELVITEGRAVIR\EMTRICITABINE\TENOFOVIR ALAFENAMIDE FUMARATE
  3. VITAMIN D NOS [Concomitant]
     Active Substance: VITAMIN D NOS
  4. ADVIL [Concomitant]
     Active Substance: IBUPROFEN
  5. COMBIVIR [Concomitant]
     Active Substance: LAMIVUDINE\ZIDOVUDINE
  6. JULUCA [Concomitant]
     Active Substance: DOLUTEGRAVIR SODIUM\RILPIVIRINE HYDROCHLORIDE
  7. SUSTIVA [Concomitant]
     Active Substance: EFAVIRENZ
  8. ATORVASTATIN [Concomitant]
     Active Substance: ATORVASTATIN
  9. CALCIUM CARBONATE\CHOLECALCIFEROL [Concomitant]
     Active Substance: CALCIUM CARBONATE\CHOLECALCIFEROL
  10. CANDESARTAN [Concomitant]
     Active Substance: CANDESARTAN
  11. VITAMIN D3 [Concomitant]
     Active Substance: CHOLECALCIFEROL
  12. CLOBETASOL [Concomitant]
     Active Substance: CLOBETASOL
  13. DENTAGEL [CHLORHEXIDINE GLUCONATE] [Concomitant]
  14. FAMOTIDINE [Concomitant]
     Active Substance: FAMOTIDINE
  15. HYDROXYZINE [Concomitant]
     Active Substance: HYDROXYZINE HYDROCHLORIDE
  16. LATANOPROST [Concomitant]
     Active Substance: LATANOPROST
  17. LOSARTAN [Concomitant]
     Active Substance: LOSARTAN
  18. METOPROLOL [Concomitant]
     Active Substance: METOPROLOL
  19. PRAMIPEXOLE [Concomitant]
     Active Substance: PRAMIPEXOLE
  20. PRAVASTATIN [Concomitant]
     Active Substance: PRAVASTATIN
  21. PREDNISONE [Concomitant]
     Active Substance: PREDNISONE
  22. DORZOLAMIDE [Concomitant]
     Active Substance: DORZOLAMIDE
  23. ZOLPIDEM [Concomitant]
     Active Substance: ZOLPIDEM TARTRATE

REACTIONS (12)
  - Osteoporosis [Unknown]
  - Chronic kidney disease [Not Recovered/Not Resolved]
  - Bone demineralisation [Unknown]
  - Pain [Not Recovered/Not Resolved]
  - Emotional distress [Not Recovered/Not Resolved]
  - Anxiety [Not Recovered/Not Resolved]
  - Anhedonia [Not Recovered/Not Resolved]
  - Rib fracture [Recovered/Resolved]
  - Foot fracture [Not Recovered/Not Resolved]
  - Bone density decreased [Not Recovered/Not Resolved]
  - Gait disturbance [Not Recovered/Not Resolved]
  - Depression [Unknown]

NARRATIVE: CASE EVENT DATE: 20140101
